FAERS Safety Report 10689297 (Version 1)
Quarter: 2015Q1

REPORT INFORMATION
  Report Type: Spontaneous
  Country: US (occurrence: US)
  Receive Date: 20150105
  Receipt Date: 20150105
  Transmission Date: 20150720
  Serious: No
  Sender: FDA-Public Use
  Company Number: US-ASTRAZENECA-2014SE98939

PATIENT
  Age: 59 Year
  Sex: Female
  Weight: 57.2 kg

DRUGS (3)
  1. PROAIR HFA [Concomitant]
     Active Substance: ALBUTEROL SULFATE
  2. SYMBICORT [Suspect]
     Active Substance: BUDESONIDE\FORMOTEROL FUMARATE DIHYDRATE
     Indication: CHRONIC SINUSITIS
     Dosage: AS REQUIRED
     Route: 055
     Dates: start: 2011
  3. MUCINEX [Concomitant]
     Active Substance: GUAIFENESIN
     Indication: CHRONIC SINUSITIS

REACTIONS (4)
  - Visual impairment [Not Recovered/Not Resolved]
  - Intentional product misuse [Recovered/Resolved]
  - Allergic sinusitis [Not Recovered/Not Resolved]
  - Intentional product use issue [Unknown]

NARRATIVE: CASE EVENT DATE: 2011
